FAERS Safety Report 7161880-2 (Version None)
Quarter: 2010Q4

REPORT INFORMATION
  Report Type: 
  Country: None (occurrence: None)
  Receive Date: 20101215
  Receipt Date: 20100712
  Transmission Date: 20110411
  Serious: Yes (Other)
  Sender: FDA-Public Use
  Company Number: CA-PFIZER INC-2009297945

PATIENT
  Age: 24 Year
  Sex: Female
  Weight: 52.154 kg

DRUGS (2)
  1. LYRICA [Suspect]
     Indication: AFFECTIVE DISORDER
     Dosage: 50 MG, 1X/DAY
     Route: 048
     Dates: start: 20090203
  2. LYRICA [Suspect]
     Indication: SLEEP DISORDER

REACTIONS (3)
  - ATTENTION DEFICIT/HYPERACTIVITY DISORDER [None]
  - DEPRESSION [None]
  - SUICIDAL IDEATION [None]
